FAERS Safety Report 8637810 (Version 4)
Quarter: 2012Q4

REPORT INFORMATION
  Report Type: 
  Country: US (occurrence: US)
  Receive Date: 20120627
  Receipt Date: 20120924
  Transmission Date: 20130627
  Serious: Yes (Other)
  Sender: FDA-Public Use
  Company Number: US-BRISTOL-MYERS SQUIBB COMPANY-16696932

PATIENT
  Age: 60 Year
  Sex: Female
  Weight: 104 kg

DRUGS (2)
  1. ORENCIA FOR INJ [Suspect]
     Indication: RHEUMATOID ARTHRITIS
     Dosage: Intd for couple of months,last inf on 06-Jun-2012,She will resume her Orencia in SQ from Oct2012.
     Route: 042
  2. PREDNISONE [Concomitant]

REACTIONS (2)
  - Intervertebral disc degeneration [Not Recovered/Not Resolved]
  - Headache [Not Recovered/Not Resolved]
